FAERS Safety Report 9565772 (Version 1)
Quarter: 2013Q3

REPORT INFORMATION
  Report Type: Report from Study
  Country: US (occurrence: US)
  Receive Date: 20130930
  Receipt Date: 20130930
  Transmission Date: 20140515
  Serious: Yes (Disabling)
  Sender: FDA-Public Use
  Company Number: US-ABBVIE-13P-163-1150066-00

PATIENT
  Age: 71 Year
  Sex: Female
  Weight: 79.45 kg

DRUGS (8)
  1. HUMIRA [Suspect]
     Indication: RHEUMATOID ARTHRITIS
  2. MELOXICAM [Concomitant]
     Indication: RHEUMATOID ARTHRITIS
  3. MONTELUKAST [Concomitant]
     Indication: ASTHMA
  4. CYCLOBENZAPRINE [Concomitant]
     Indication: MUSCLE SPASMS
  5. OMEPRAZOLE [Concomitant]
     Indication: GASTROOESOPHAGEAL REFLUX DISEASE
  6. PROVENTIL [Concomitant]
     Indication: ASTHMA
     Route: 055
  7. ADVAIR [Concomitant]
     Indication: ASTHMA
     Route: 055
  8. NASAL SPRAY [Concomitant]
     Indication: HYPERSENSITIVITY

REACTIONS (3)
  - Dementia Alzheimer^s type [Not Recovered/Not Resolved]
  - Memory impairment [Not Recovered/Not Resolved]
  - Anxiety [Not Recovered/Not Resolved]
